FAERS Safety Report 15800125 (Version 2)
Quarter: 2019Q1

REPORT INFORMATION
  Report Type: Report from Study
  Country: EG (occurrence: EG)
  Receive Date: 20190108
  Receipt Date: 20190117
  Transmission Date: 20190417
  Serious: Yes (Hospitalization, Other)
  Sender: FDA-Public Use
  Company Number: PHHY2018EG199365

PATIENT
  Age: 29 Year
  Sex: Female

DRUGS (2)
  1. GLIVEC [Suspect]
     Active Substance: IMATINIB MESYLATE
     Indication: CHRONIC MYELOID LEUKAEMIA
     Dosage: 400 MG, QD
     Route: 048
     Dates: start: 201502, end: 201505
  2. GLIVEC [Suspect]
     Active Substance: IMATINIB MESYLATE
     Dosage: 400 MG, QD
     Route: 048
     Dates: start: 201511, end: 201805

REACTIONS (12)
  - Bone pain [Recovering/Resolving]
  - Vaginal haemorrhage [Recovered/Resolved]
  - Myalgia [Recovering/Resolving]
  - Maternal exposure during pregnancy [Recovered/Resolved]
  - Burning sensation [Recovering/Resolving]
  - Gastrointestinal disorder [Recovering/Resolving]
  - Eating disorder [Recovering/Resolving]
  - Cytogenetic analysis abnormal [Unknown]
  - Concomitant disease aggravated [Recovering/Resolving]
  - Gastritis [Recovering/Resolving]
  - Pyrexia [Recovering/Resolving]
  - Pregnancy with contraceptive device [Recovered/Resolved]

NARRATIVE: CASE EVENT DATE: 201502
